FAERS Safety Report 4668571-8 (Version None)
Quarter: 2005Q2

REPORT INFORMATION
  Report Type: 
  Country: None (occurrence: None)
  Receive Date: 20050519
  Receipt Date: 20050509
  Transmission Date: 20051028
  Serious: Yes (Hospitalization, Other)
  Sender: FDA-Public Use
  Company Number: 2005072795

PATIENT
  Age: 74 Year
  Sex: Female
  Weight: 63.5036 kg

DRUGS (10)
  1. BEXTRA [Suspect]
     Indication: ARTHRALGIA
     Dosage: 20 MG (20 MG, 1 IN1 D), ORAL
     Route: 048
     Dates: start: 20030101
  2. IBUPROFEN [Suspect]
     Indication: ARTHRALGIA
     Dosage: 2400 MG (800 MG, 3 IN 1 D), ORAL
     Route: 048
     Dates: start: 20050101, end: 20050101
  3. THYROID TAB [Concomitant]
  4. ALLEGRA [Concomitant]
  5. DYAZIDE [Concomitant]
  6. VASOTEC [Concomitant]
  7. WARAFRIN (WARFARIN) [Concomitant]
  8. VITAMIN E [Concomitant]
  9. VITAMIN C (VITAMIN C) [Concomitant]
  10. MULTIVITAMIN [Concomitant]

REACTIONS (2)
  - DRUG INEFFECTIVE [None]
  - UTERINE PROLAPSE [None]
